FAERS Safety Report 4310447-X (Version None)
Quarter: 2004Q1

REPORT INFORMATION
  Report Type: 
  Country: None (occurrence: None)
  Receive Date: 20040302
  Receipt Date: 20040212
  Transmission Date: 20041129
  Serious: Yes (Hospitalization)
  Sender: FDA-Public Use
  Company Number: F01200400257

PATIENT
  Age: 68 Year
  Sex: Male

DRUGS (11)
  1. OXALIPLATIN [Suspect]
     Indication: COLORECTAL CANCER METASTATIC
     Dosage: 232.7 MG Q3W, INTRAVENOUS NOS
     Route: 042
     Dates: start: 20040105, end: 20040105
  2. CAPECITABINE [Suspect]
     Dosage: 1800 MG TWICE A DAY FROM DAY 1 TO DAY 15
     Route: 048
     Dates: start: 20040105, end: 20040115
  3. EPREX [Concomitant]
  4. CARDIZEM [Concomitant]
  5. DIGOXIN [Concomitant]
  6. VENTOLIN [Concomitant]
  7. ATROVENT [Concomitant]
  8. OMEPRAZOLE [Concomitant]
  9. FERROUS GLUCONATE [Concomitant]
  10. WARFARIN SODIUM [Concomitant]
  11. FOLIC ACIC [Concomitant]

REACTIONS (14)
  - ABDOMINAL PAIN [None]
  - ANOREXIA [None]
  - AZOTAEMIA [None]
  - BLOOD CREATININE INCREASED [None]
  - BLOOD UREA INCREASED [None]
  - CACHEXIA [None]
  - COAGULOPATHY [None]
  - DEHYDRATION [None]
  - DYSPNOEA [None]
  - FATIGUE [None]
  - GASTROINTESTINAL HAEMORRHAGE [None]
  - HAEMATEMESIS [None]
  - INTERNATIONAL NORMALISED RATIO INCREASED [None]
  - METABOLIC ACIDOSIS [None]
